FAERS Safety Report 18986003 (Version 1)
Quarter: 2021Q1

REPORT INFORMATION
  Report Type: Spontaneous
  Country: US (occurrence: US)
  Receive Date: 20210309
  Receipt Date: 20210309
  Transmission Date: 20210420
  Serious: Yes (Death, Hospitalization, Other)
  Sender: FDA-Public Use
  Company Number: US-LUPIN PHARMACEUTICALS INC.-2021-02843

PATIENT
  Age: 55 Year
  Sex: Female

DRUGS (6)
  1. METHYLENE BLUE. [Suspect]
     Active Substance: METHYLENE BLUE
     Dosage: 0.25 MILLIGRAM/KILOGRAM (01?HOUR INFUSION)
     Route: 065
  2. AMLODIPINE [Suspect]
     Active Substance: AMLODIPINE BESYLATE
     Indication: PRODUCT USED FOR UNKNOWN INDICATION
     Dosage: 10 MILLIGRAM, QD
     Route: 048
  3. METHYLENE BLUE. [Suspect]
     Active Substance: METHYLENE BLUE
     Indication: TOXICITY TO VARIOUS AGENTS
     Dosage: 1 MILLIGRAM/KILOGRAM (BOLUS OVER 20 MINUTES, FOLLOWED BY 0.25 MG/KG/HOUR INFUSION)
     Route: 065
  4. ALPRAZOLAM. [Concomitant]
     Active Substance: ALPRAZOLAM
     Indication: PRODUCT USED FOR UNKNOWN INDICATION
     Dosage: 0.25 MILLIGRAM, QD (AT BED TIME)
     Route: 065
  5. DULOXETINE. [Concomitant]
     Active Substance: DULOXETINE
     Indication: PRODUCT USED FOR UNKNOWN INDICATION
     Dosage: 20 MILLIGRAM, QD
     Route: 065
  6. AMLODIPINE [Suspect]
     Active Substance: AMLODIPINE BESYLATE
     Dosage: UNK (INGESTED HALF A BOTTLE OF AMLODIPINE)
     Route: 048

REACTIONS (4)
  - Respiratory failure [Fatal]
  - Overdose [Fatal]
  - Circulatory collapse [Fatal]
  - Toxicity to various agents [Fatal]
